FAERS Safety Report 11408645 (Version 1)
Quarter: 2015Q3

REPORT INFORMATION
  Report Type: Spontaneous
  Country: IT (occurrence: IT)
  Receive Date: 20150822
  Receipt Date: 20150822
  Transmission Date: 20151125
  Serious: Yes (Death, Hospitalization)
  Sender: FDA-Public Use
  Company Number: PHHY2015IT099149

PATIENT
  Age: 63 Year
  Sex: Female

DRUGS (2)
  1. RIBAVIRIN. [Suspect]
     Active Substance: RIBAVIRIN
     Indication: HEPATITIS C
     Dosage: 800 MG, UNK
     Route: 065
     Dates: start: 20140924
  2. SOFOSBUVIR [Suspect]
     Active Substance: SOFOSBUVIR
     Indication: HEPATITIS C
     Route: 065

REACTIONS (5)
  - Generalised oedema [Unknown]
  - Femur fracture [Unknown]
  - Gastrointestinal disorder [Fatal]
  - Ascites [Unknown]
  - Asthenia [Unknown]

NARRATIVE: CASE EVENT DATE: 20150108
